FAERS Safety Report 8905280 (Version 1)
Quarter: 2012Q4

REPORT INFORMATION
  Report Type: 
  Country: CA (occurrence: CA)
  Receive Date: 20121111
  Receipt Date: 20121111
  Transmission Date: 20130627
  Serious: Yes (Other)
  Sender: FDA-Public Use
  Company Number: PHMT2006CA01663

PATIENT
  Sex: Male

DRUGS (18)
  1. SANDOSTATIN LAR [Suspect]
     Indication: CARCINOID TUMOUR
     Dosage: 30 mg, every 3 weeks
     Dates: start: 20041116
  2. SANDOSTATIN [Suspect]
     Route: 058
  3. ACTONEL [Concomitant]
  4. ADVAIR [Concomitant]
  5. AERIUS [Concomitant]
  6. COTAZYM [Concomitant]
  7. FENTANYL [Concomitant]
     Route: 062
  8. HYDROMORPHONE [Concomitant]
  9. LOMOTIL [Concomitant]
  10. MORPHINE [Concomitant]
  11. NASOCORT [Concomitant]
  12. DOMPERIDONE [Concomitant]
  13. PANTOPRAZOLE [Concomitant]
  14. TYLENOL W/CODEINE NO. 3 [Concomitant]
  15. UNIPHYL [Concomitant]
  16. VENTOLIN NEBULES PF [Concomitant]
  17. MOTILIUM [Concomitant]
  18. PENTALOC [Concomitant]

REACTIONS (17)
  - Dyspnoea [Not Recovered/Not Resolved]
  - Hyperglycaemia [Not Recovered/Not Resolved]
  - Blood pressure diastolic decreased [Unknown]
  - Hypotension [Unknown]
  - Lip pain [Unknown]
  - Back injury [Unknown]
  - Fall [Unknown]
  - Contusion [Unknown]
  - Weight increased [Not Recovered/Not Resolved]
  - Pyrexia [Unknown]
  - Injection site pain [Unknown]
  - Bradycardia [Unknown]
  - Tachycardia [Unknown]
  - Fatigue [Unknown]
  - Nausea [Unknown]
  - Constipation [Unknown]
  - Diarrhoea [Recovering/Resolving]
